FAERS Safety Report 6822218-0 (Version None)
Quarter: 2010Q3

REPORT INFORMATION
  Report Type: 
  Country: None (occurrence: None)
  Receive Date: 20100708
  Receipt Date: 20100701
  Transmission Date: 20110219
  Serious: Yes (Other)
  Sender: FDA-Public Use
  Company Number: US-ASTRAZENECA-2007UW25126

PATIENT
  Age: 18584 Day
  Sex: Male
  Weight: 104.3 kg

DRUGS (18)
  1. SEROQUEL [Suspect]
     Indication: DEPRESSION
     Dosage: 200 MG DISPENSED
     Route: 048
     Dates: start: 20010308
  2. SEROQUEL [Suspect]
     Dosage: 100-300 MG
     Route: 048
     Dates: start: 20020918, end: 20070309
  3. SEROQUEL [Suspect]
     Route: 048
     Dates: start: 20060112
  4. SEROQUEL [Suspect]
     Dosage: 100-300 MG
     Route: 048
     Dates: start: 20010308
  5. CARDURA [Concomitant]
     Dosage: 4 MG DISPENSED
     Dates: start: 19991118
  6. DIPHENHYDRAMINE HCL [Concomitant]
     Dosage: 50 MG DISPENSED
     Dates: start: 20000424
  7. HALOPERIDOL [Concomitant]
     Dosage: 1 MG DISPENSED
     Dates: start: 20010425
  8. PRILOSEC [Concomitant]
     Dosage: 20 MG DISPENSED
     Dates: start: 20010607
  9. DEPAKOTE [Concomitant]
     Dosage: 250 MG DISPENSED
     Dates: start: 20020214
  10. DEPAKOTE [Concomitant]
     Dosage: 500 MG TWO TABLETS TWO TIMES A DAY
     Dates: start: 20060112
  11. DEPAKOTE [Concomitant]
     Dates: start: 20070329
  12. ACTOS [Concomitant]
     Dates: start: 20050209
  13. DILTIAZEM HCL [Concomitant]
     Dates: start: 20060112
  14. NABUMETONE [Concomitant]
     Dates: start: 20050209
  15. ALBUTEROL [Concomitant]
     Dosage: 90 MCG DISPENSED
     Dates: start: 20011024
  16. CAPTOPRIL [Concomitant]
     Dosage: 50 MG DISPENSED
     Dates: start: 20011031
  17. ZYRTEC [Concomitant]
     Dosage: 10 MG DISPENSED
     Dates: start: 20010707
  18. TRAZODONE HYDROCHLORIDE [Concomitant]
     Dosage: 50 MG DISPENSED
     Dates: start: 20010607

REACTIONS (3)
  - DIABETIC COMPLICATION [None]
  - PARALYSIS [None]
  - TYPE 2 DIABETES MELLITUS [None]
